FAERS Safety Report 20810326 (Version 1)
Quarter: 2022Q2

REPORT INFORMATION
  Report Type: Spontaneous
  Country: US (occurrence: US)
  Receive Date: 20220510
  Receipt Date: 20220510
  Transmission Date: 20220720
  Serious: No
  Sender: FDA-Public Use
  Company Number: US-GE HEALTHCARE-2022CSU001236

PATIENT
  Age: 38 Year
  Sex: Female

DRUGS (4)
  1. OMNIPAQUE [Suspect]
     Active Substance: IOHEXOL
     Indication: Computerised tomogram abdomen
     Dosage: 50 ML, SINGLE
     Route: 048
     Dates: start: 20220219, end: 20220219
  2. OMNIPAQUE [Suspect]
     Active Substance: IOHEXOL
     Indication: Abdominal pain
  3. OMNIPAQUE [Suspect]
     Active Substance: IOHEXOL
     Indication: Computerised tomogram abdomen
     Dosage: 150 ML (OVER 70 SECS), SINGLE
     Route: 042
     Dates: start: 20220219, end: 20220219
  4. OMNIPAQUE [Suspect]
     Active Substance: IOHEXOL
     Indication: Abdominal pain

REACTIONS (3)
  - Anxiety [Recovered/Resolved]
  - Paraesthesia [Recovering/Resolving]
  - Throat irritation [Recovered/Resolved]

NARRATIVE: CASE EVENT DATE: 20220219
